FAERS Safety Report 23127373 (Version 3)
Quarter: 2023Q4

REPORT INFORMATION
  Report Type: Spontaneous
  Country: EC (occurrence: EC)
  Receive Date: 20231031
  Receipt Date: 20231129
  Transmission Date: 20240110
  Serious: Yes (Death, Life-Threatening, Hospitalization, Other)
  Sender: FDA-Public Use
  Company Number: None

PATIENT
  Age: 2 Year
  Sex: Male
  Weight: 8.6 kg

DRUGS (22)
  1. PREDNISOLONE [Suspect]
     Active Substance: PREDNISOLONE
     Indication: Crohn^s disease
     Dosage: 5 MILLIGRAM, QD, ADMINISTERED AT 8 AM, TABLET
     Route: 048
  2. PREDNISOLONE [Suspect]
     Active Substance: PREDNISOLONE
     Indication: Inflammatory bowel disease
  3. NYSTATIN [Suspect]
     Active Substance: NYSTATIN
     Indication: Oesophagitis
     Dosage: UNK
     Route: 048
  4. NYSTATIN [Suspect]
     Active Substance: NYSTATIN
     Indication: Candida infection
  5. NYSTATIN [Suspect]
     Active Substance: NYSTATIN
     Indication: Duodenitis
  6. VANCOMYCIN [Suspect]
     Active Substance: VANCOMYCIN
     Indication: Bacterial infection
     Dosage: UNK
     Route: 065
  7. AZATHIOPRINE [Suspect]
     Active Substance: AZATHIOPRINE
     Indication: Crohn^s disease
     Dosage: UNK
     Route: 065
  8. AZATHIOPRINE [Suspect]
     Active Substance: AZATHIOPRINE
     Indication: Inflammatory bowel disease
  9. CLARITHROMYCIN [Suspect]
     Active Substance: CLARITHROMYCIN
     Indication: Helicobacter infection
     Dosage: UNK
     Route: 065
  10. OMEPRAZOLE [Suspect]
     Active Substance: OMEPRAZOLE
     Indication: Helicobacter infection
     Dosage: UNK
     Route: 065
  11. MESALAMINE [Suspect]
     Active Substance: MESALAMINE
     Indication: Crohn^s disease
     Dosage: UNK
     Route: 065
  12. MESALAMINE [Suspect]
     Active Substance: MESALAMINE
     Indication: Inflammatory bowel disease
  13. METHYLPREDNISOLONE [Suspect]
     Active Substance: METHYLPREDNISOLONE
     Indication: Inflammatory bowel disease
     Dosage: UNK
     Route: 065
  14. METHYLPREDNISOLONE [Suspect]
     Active Substance: METHYLPREDNISOLONE
     Indication: Crohn^s disease
  15. AMPICILLIN SODIUM\SULBACTAM SODIUM [Suspect]
     Active Substance: AMPICILLIN SODIUM\SULBACTAM SODIUM
     Indication: Antibiotic therapy
     Dosage: UNK
     Route: 065
  16. CEFTRIAXONE [Suspect]
     Active Substance: CEFTRIAXONE\CEFTRIAXONE SODIUM
     Indication: Antibiotic therapy
     Dosage: UNK
     Route: 065
  17. AMIKACIN [Suspect]
     Active Substance: AMIKACIN
     Indication: Antibiotic therapy
     Dosage: UNK
     Route: 065
  18. COTRIMOXAZOLE [Suspect]
     Active Substance: SULFAMETHOXAZOLE\TRIMETHOPRIM
     Indication: Antibiotic therapy
     Dosage: UNK
     Route: 065
  19. TERBINAFINE [Suspect]
     Active Substance: TERBINAFINE
     Indication: Fungal infection
     Dosage: UNK
     Route: 065
  20. FLUCONAZOLE [Suspect]
     Active Substance: FLUCONAZOLE
     Indication: Oesophagitis
     Dosage: UNK
     Route: 065
  21. FLUCONAZOLE [Suspect]
     Active Substance: FLUCONAZOLE
     Indication: Candida infection
  22. FLUCONAZOLE [Suspect]
     Active Substance: FLUCONAZOLE
     Indication: Duodenitis

REACTIONS (3)
  - Histoplasmosis disseminated [Fatal]
  - Condition aggravated [Fatal]
  - Tachycardia [Recovered/Resolved]
